FAERS Safety Report 8585886-1 (Version None)
Quarter: 2012Q3

REPORT INFORMATION
  Report Type: 
  Country: None (occurrence: None)
  Receive Date: 20120810
  Receipt Date: 20120806
  Transmission Date: 20120928
  Serious: No
  Sender: FDA-Public Use
  Company Number: US-TEVA-352470USA

PATIENT
  Sex: Female
  Weight: 113.5 kg

DRUGS (7)
  1. PROVIGIL [Concomitant]
     Indication: FATIGUE
     Dosage: 200 MILLIGRAM DAILY;
     Route: 048
     Dates: start: 20080101, end: 20100101
  2. NUVIGIL [Suspect]
     Indication: CARDIAC FIBRILLATION
  3. PROVIGIL [Concomitant]
     Indication: ENCEPHALITIS
  4. NUVIGIL [Suspect]
     Indication: FATIGUE
     Dosage: PRN
     Route: 048
     Dates: start: 20120730
  5. PROVIGIL [Concomitant]
     Indication: CARDIAC FIBRILLATION
  6. ATENOLOL [Concomitant]
  7. NUVIGIL [Suspect]
     Indication: ENCEPHALITIS

REACTIONS (2)
  - THERAPEUTIC RESPONSE UNEXPECTED [None]
  - OFF LABEL USE [None]
